FAERS Safety Report 4627503-9 (Version None)
Quarter: 2005Q1

REPORT INFORMATION
  Report Type: 
  Country: None (occurrence: None)
  Receive Date: 20050330
  Receipt Date: 20050323
  Transmission Date: 20050727
  Serious: Yes (Other)
  Sender: FDA-Public Use
  Company Number: TUK2005A00021

PATIENT
  Age: 60 Year
  Sex: Female

DRUGS (6)
  1. ACTOS [Suspect]
     Dosage: 15 MG ORAL
     Route: 048
     Dates: start: 20040701
  2. ACTOS [Suspect]
     Dosage: 30 MG ORAL
     Route: 048
     Dates: start: 20050228
  3. AMLODIPINE [Concomitant]
  4. ASPIRIN [Concomitant]
  5. RAMIPRIL [Concomitant]
  6. METFORMIN HCL [Concomitant]

REACTIONS (4)
  - HEADACHE [None]
  - LETHARGY [None]
  - PAROTITIS [None]
  - SARCOIDOSIS [None]
